FAERS Safety Report 6059464-2 (Version None)
Quarter: 2009Q1

REPORT INFORMATION
  Report Type: 
  Country: None (occurrence: None)
  Receive Date: 20090130
  Receipt Date: 20090121
  Transmission Date: 20090719
  Serious: Yes (Other)
  Sender: FDA-Public Use
  Company Number: PHHY2008GB23025

PATIENT
  Sex: Male

DRUGS (3)
  1. NEORAL [Suspect]
     Indication: ECZEMA
     Dosage: 250 MG/DAY
     Dates: start: 20070301, end: 20081101
  2. NEORAL [Suspect]
     Dosage: 25 TO 50 MG EVERY FEW DAYS
     Dates: start: 20081101, end: 20081201
  3. NEORAL [Suspect]
     Dosage: 50 MG EVERY FIVE DAYS
     Dates: start: 20081201

REACTIONS (7)
  - ABDOMINAL PAIN UPPER [None]
  - ALOPECIA TOTALIS [None]
  - BLOOD PRESSURE FLUCTUATION [None]
  - DIARRHOEA [None]
  - ECZEMA [None]
  - NAUSEA [None]
  - SELF ESTEEM DECREASED [None]
